FAERS Safety Report 26210147 (Version 1)
Quarter: 2025Q4

REPORT INFORMATION
  Report Type: Spontaneous
  Country: US (occurrence: US)
  Receive Date: 20251229
  Receipt Date: 20251229
  Transmission Date: 20260117
  Serious: Yes (Other)
  Sender: MALLINCKRODT
  Company Number: US-MALLINCKRODT-MNK202508281

PATIENT
  Age: 35 Year
  Sex: Female

DRUGS (1)
  1. NITRIC OXIDE [Suspect]
     Active Substance: NITRIC OXIDE
     Indication: Pulmonary arterial hypertension
     Dosage: UNKNOWN
     Route: 055

REACTIONS (6)
  - Shock [Unknown]
  - Ventricular fibrillation [Unknown]
  - Hypoxia [Unknown]
  - Cerebral disorder [Unknown]
  - Hypotension [Unknown]
  - Product use issue [Unknown]
